FAERS Safety Report 24644501 (Version 2)
Quarter: 2024Q4

REPORT INFORMATION
  Report Type: Report from Study
  Country: CA (occurrence: CA)
  Receive Date: 20241121
  Receipt Date: 20241203
  Transmission Date: 20250115
  Serious: Yes (Hospitalization, Other)
  Sender: BIOGEN
  Company Number: CA-BIOGEN-2024BI01290735

PATIENT
  Sex: Male

DRUGS (1)
  1. TECFIDERA [Suspect]
     Active Substance: DIMETHYL FUMARATE
     Indication: Multiple sclerosis
     Route: 050
     Dates: start: 20201102

REACTIONS (5)
  - Myocardial infarction [Unknown]
  - Cardiac murmur [Unknown]
  - Anaemia [Unknown]
  - Internal haemorrhage [Unknown]
  - Confusional state [Unknown]
